FAERS Safety Report 7687625-5 (Version None)
Quarter: 2011Q3

REPORT INFORMATION
  Report Type: 
  Country: None (occurrence: None)
  Receive Date: 20110817
  Receipt Date: 20110309
  Transmission Date: 20111222
  Serious: No
  Sender: FDA-Public Use
  Company Number: US-BAYER-2011-021589

PATIENT
  Age: 38 Year
  Sex: Female

DRUGS (1)
  1. MIRENA [Suspect]
     Indication: CONTRACEPTION
     Dosage: UNK
     Route: 015
     Dates: start: 20060101

REACTIONS (4)
  - MENSTRUAL DISORDER [None]
  - HYPOMENORRHOEA [None]
  - MEDICAL DEVICE COMPLICATION [None]
  - MENOMETRORRHAGIA [None]
